FAERS Safety Report 18314362 (Version 1)
Quarter: 2020Q3

REPORT INFORMATION
  Report Type: Spontaneous
  Country: US (occurrence: US)
  Receive Date: 20200925
  Receipt Date: 20200925
  Transmission Date: 20201103
  Serious: No
  Sender: FDA-Public Use
  Company Number: US-BELCHER PHARMACEUTICALS, LLC-2020US005438

PATIENT

DRUGS (3)
  1. EPINEPHRINE INJECTION USP [Suspect]
     Active Substance: EPINEPHRINE
     Indication: LOCAL ANAESTHESIA
     Dosage: 1 MG/ML
     Route: 065
     Dates: start: 20200908, end: 20200908
  2. RINGER LACTATED [Concomitant]
     Indication: LOCAL ANAESTHESIA
     Dosage: 1000 CC
     Route: 065
  3. LIDOCAINE HCL [Concomitant]
     Active Substance: LIDOCAINE HYDROCHLORIDE
     Indication: LOCAL ANAESTHESIA
     Dosage: 30 CC OF 2%
     Route: 065
     Dates: start: 20200908

REACTIONS (4)
  - Drug ineffective [Unknown]
  - Procedural haemorrhage [Unknown]
  - Off label use [Unknown]
  - Extra dose administered [Unknown]

NARRATIVE: CASE EVENT DATE: 20200908
